FAERS Safety Report 8920657 (Version 1)
Quarter: 2012Q4

REPORT INFORMATION
  Report Type: Report from Study
  Country: IT (occurrence: IT)
  Receive Date: 20121121
  Receipt Date: 20121121
  Transmission Date: 20130627
  Serious: Yes (Death, Hospitalization, Other)
  Sender: FDA-Public Use
  Company Number: IT-ROCHE-1154050

PATIENT
  Age: 54 Year
  Sex: Male
  Weight: 62 kg

DRUGS (5)
  1. VEMURAFENIB [Suspect]
     Indication: METASTATIC MALIGNANT MELANOMA
     Route: 048
  2. URBASON [Concomitant]
     Route: 065
  3. PANTORC [Concomitant]
     Route: 065
  4. HUMALOG [Concomitant]
     Dosage: 5 units
     Route: 065
  5. MORPHINE [Concomitant]
     Dosage: 1/2 vial
     Route: 058

REACTIONS (9)
  - Death [Fatal]
  - Dyspnoea [Unknown]
  - Haematemesis [Unknown]
  - Aphasia [Unknown]
  - Blood pressure systolic decreased [Unknown]
  - Blood lactate dehydrogenase increased [Unknown]
  - Tachycardia [Unknown]
  - Hyperglycaemia [Unknown]
  - Hypercreatinaemia [Unknown]
